FAERS Safety Report 25968399 (Version 1)
Quarter: 2025Q4

REPORT INFORMATION
  Report Type: Spontaneous
  Country: GB (occurrence: GB)
  Receive Date: 20251028
  Receipt Date: 20251028
  Transmission Date: 20260118
  Serious: Yes (Other)
  Sender: RANBAXY
  Company Number: GB-MHRA-MED-202510101959363350-WHDVG

PATIENT
  Age: 26 Year
  Sex: Female
  Weight: 66 kg

DRUGS (2)
  1. ACYCLOVIR [Suspect]
     Active Substance: ACYCLOVIR
     Indication: Herpes dermatitis
     Dosage: 200 MG 5 X A DAY FOR 5 DAYS.
     Route: 065
     Dates: start: 20250916
  2. PROPRANOLOL HYDROCHLORIDE [Concomitant]
     Active Substance: PROPRANOLOL HYDROCHLORIDE
     Indication: Essential tremor
     Dosage: 40 MILLIGRAM
     Route: 065

REACTIONS (8)
  - Memory impairment [Unknown]
  - Brain fog [Recovering/Resolving]
  - Arthralgia [Recovered/Resolved]
  - Pruritus [Recovered/Resolved]
  - Tension headache [Recovered/Resolved]
  - Fatigue [Recovered/Resolved]
  - Somnolence [Unknown]
  - Rash [Unknown]
